FAERS Safety Report 23869122 (Version 2)
Quarter: 2024Q2

REPORT INFORMATION
  Report Type: Spontaneous
  Country: AU (occurrence: AU)
  Receive Date: 20240517
  Receipt Date: 20240521
  Transmission Date: 20240716
  Serious: Yes (Other)
  Sender: FDA-Public Use
  Company Number: AU-JNJFOC-20240534904

PATIENT
  Age: 81 Year
  Sex: Female

DRUGS (1)
  1. ACETAMINOPHEN [Suspect]
     Active Substance: ACETAMINOPHEN
     Indication: Analgesic therapy
     Dosage: 9 TO 11 G DAILY FOR FOR PAST 7 TO 10 DAYS
     Route: 048

REACTIONS (2)
  - Acute hepatic failure [Unknown]
  - Hypotension [Unknown]
